FAERS Safety Report 22641186 (Version 1)
Quarter: 2023Q2

REPORT INFORMATION
  Report Type: Spontaneous
  Country: US (occurrence: US)
  Receive Date: 20230626
  Receipt Date: 20230626
  Transmission Date: 20230722
  Serious: No
  Sender: FDA-Public Use
  Company Number: US-LUPIN PHARMACEUTICALS INC.-2023-04909

PATIENT

DRUGS (2)
  1. MAGNESIUM SULFATE\POTASSIUM SULFATE\SODIUM SULFATE [Suspect]
     Active Substance: MAGNESIUM SULFATE\POTASSIUM SULFATE\SODIUM SULFATE
     Indication: Colonoscopy
     Dosage: UNK, BOTTLE DILUTED IT WITH 16 OUNCES FOLLOWED BY TWO 16-OUNCE GLASSES
     Route: 048
     Dates: start: 20230606
  2. MAGNESIUM SULFATE\POTASSIUM SULFATE\SODIUM SULFATE [Suspect]
     Active Substance: MAGNESIUM SULFATE\POTASSIUM SULFATE\SODIUM SULFATE
     Dosage: UNK, EPEATED IT ON 07-JUN-2023 AT 8:00 AM
     Route: 048
     Dates: start: 20230607

REACTIONS (1)
  - Diarrhoea [Unknown]
